FAERS Safety Report 4446006-8 (Version None)
Quarter: 2004Q3

REPORT INFORMATION
  Report Type: 
  Country: None (occurrence: None)
  Receive Date: 20040910
  Receipt Date: 20040831
  Transmission Date: 20050211
  Serious: Yes (Hospitalization)
  Sender: FDA-Public Use
  Company Number: FR-BRISTOL-MYERS SQUIBB COMPANY-12687893

PATIENT
  Age: 91 Year
  Sex: Male

DRUGS (5)
  1. APROVEL TABS [Suspect]
     Indication: HYPERTENSION
     Dosage: 1/DAY
     Route: 048
     Dates: end: 20040608
  2. LYSANXIA [Suspect]
     Indication: NEUROSIS
     Dosage: 15MG-0.5/DAY
     Route: 048
     Dates: end: 20040608
  3. DIAMICRON [Suspect]
     Indication: DIABETES MELLITUS NON-INSULIN-DEPENDENT
     Dosage: 1/DAY
     Route: 048
     Dates: end: 20040608
  4. TENSTATEN [Suspect]
     Indication: HYPERTENSION
     Dosage: 1/DAY
     Route: 048
     Dates: end: 20040608
  5. CALDINE [Suspect]
     Dosage: 1/DAY
     Route: 048
     Dates: end: 20040608

REACTIONS (2)
  - FALL [None]
  - MALAISE [None]
